FAERS Safety Report 4525856-3 (Version None)
Quarter: 2004Q4

REPORT INFORMATION
  Report Type: 
  Country: None (occurrence: None)
  Receive Date: 20041124
  Receipt Date: 20040108
  Transmission Date: 20050328
  Serious: Yes (Other)
  Sender: FDA-Public Use
  Company Number: 2003123194

PATIENT
  Age: 64 Year
  Sex: Male

DRUGS (1)
  1. TIKOSYN [Suspect]
     Indication: ILL-DEFINED DISORDER
     Dosage: 1000 MCG (BID), ORAL
     Route: 048
     Dates: start: 20031201, end: 20031205

REACTIONS (2)
  - ATRIAL FIBRILLATION [None]
  - CARDIOVERSION [None]
